FAERS Safety Report 7957621-9 (Version None)
Quarter: 2011Q4

REPORT INFORMATION
  Report Type: 
  Country: None (occurrence: None)
  Receive Date: 20111205
  Receipt Date: 20111124
  Transmission Date: 20120403
  Serious: Yes (Other)
  Sender: FDA-Public Use
  Company Number: PHHY2011JP103612

PATIENT
  Sex: Female

DRUGS (4)
  1. AVAPRO [Concomitant]
     Indication: HYPERTENSION
     Dosage: 100 MG, UNK
     Route: 048
     Dates: start: 20090907, end: 20100125
  2. AMLODIPINE [Concomitant]
     Indication: HYPERTENSION
     Dosage: 2.5 MG, UNK
     Dates: start: 20091214, end: 20100125
  3. LIPITOR [Concomitant]
     Dosage: 5 MG, UNK
     Route: 048
     Dates: start: 20100802, end: 20101115
  4. ALISKIREN [Suspect]
     Indication: HYPERTENSION
     Dosage: 150 MG, QD
     Route: 048
     Dates: start: 20100126, end: 20100903

REACTIONS (3)
  - BLOOD URIC ACID INCREASED [None]
  - BRADYCARDIA [None]
  - BLOOD UREA INCREASED [None]
